FAERS Safety Report 4626936-4 (Version None)
Quarter: 2005Q2

REPORT INFORMATION
  Report Type: 
  Country: None (occurrence: None)
  Receive Date: 20050405
  Receipt Date: 20050329
  Transmission Date: 20051028
  Serious: Yes (Death)
  Sender: FDA-Public Use
  Company Number: US-MERCK-0503USA05044

PATIENT
  Age: 60 Year
  Sex: Female

DRUGS (3)
  1. CANCIDAS [Suspect]
     Indication: LEUKAEMIA
     Route: 065
  2. CANCIDAS [Suspect]
     Indication: NEUTROPENIA
     Route: 065
  3. [THERAPY UNSPECIFIED] [Concomitant]
     Route: 065

REACTIONS (2)
  - DEATH [None]
  - LIVER FUNCTION TEST ABNORMAL [None]
